FAERS Safety Report 7964589-8 (Version None)
Quarter: 2011Q4

REPORT INFORMATION
  Report Type: 
  Country: None (occurrence: None)
  Receive Date: 20111205
  Receipt Date: 20111205
  Transmission Date: 20120403
  Serious: No
  Sender: FDA-Public Use
  Company Number: None

PATIENT
  Sex: Male
  Weight: 85.9 kg

DRUGS (6)
  1. PREDNISONE TAB [Suspect]
     Dosage: 650 MG
  2. DOXORUBICIN HCL [Suspect]
     Dosage: 88 MG
  3. RITUXIMAB (MOAB C2B8 ANTI CD20, CHIMERIC) [Suspect]
     Dosage: 818 MG
  4. CYCLOPHOSPHAMIDE [Suspect]
     Dosage: 1635 MG
  5. VINCRISTINE SULFATE [Suspect]
     Dosage: 3.48 MG
  6. ETOPOSIDE [Suspect]
     Dosage: 436 MG

REACTIONS (3)
  - PYREXIA [None]
  - ERYTHEMA [None]
  - PENILE PAIN [None]
